FAERS Safety Report 23778477 (Version 1)
Quarter: 2024Q2

REPORT INFORMATION
  Report Type: Spontaneous
  Country: US (occurrence: None)
  Receive Date: 20240424
  Receipt Date: 20240424
  Transmission Date: 20240716
  Serious: No
  Sender: FDA-Public Use
  Company Number: None

PATIENT
  Age: 34 Year
  Sex: Male

DRUGS (4)
  1. CABOTEGRAVIR [Suspect]
     Active Substance: CABOTEGRAVIR
     Indication: Product used for unknown indication
     Dosage: 600 MG EVERY 2 MONTHS INTRAMUSCULAR ?
     Route: 030
     Dates: start: 20240321
  2. BICILLIN L-A [Suspect]
     Active Substance: PENICILLIN G BENZATHINE
     Indication: Syphilis
     Dosage: INTRAMUSCULAR
     Route: 030
     Dates: start: 20240418, end: 20240418
  3. CABOTEGRAVIR [Concomitant]
     Active Substance: CABOTEGRAVIR
     Dates: start: 20240321
  4. BICILLIN L-A [Concomitant]
     Active Substance: PENICILLIN G BENZATHINE
     Dates: start: 20240418, end: 20240418

REACTIONS (4)
  - Hypotension [None]
  - Pallor [None]
  - Hyperhidrosis [None]
  - Nausea [None]

NARRATIVE: CASE EVENT DATE: 20240418
